FAERS Safety Report 8478110-1 (Version None)
Quarter: 2012Q2

REPORT INFORMATION
  Report Type: 
  Country: None (occurrence: None)
  Receive Date: 20120629
  Receipt Date: 20120625
  Transmission Date: 20120825
  Serious: Yes (Other)
  Sender: FDA-Public Use
  Company Number: US-PFIZER INC-2006021457

PATIENT
  Sex: Female
  Weight: 56.689 kg

DRUGS (8)
  1. LITHIUM CARBONATE [Suspect]
     Dosage: UNK
     Route: 065
     Dates: start: 19830101, end: 20110515
  2. DALMANE [Concomitant]
     Dosage: UNK
     Route: 065
  3. ZOLOFT [Suspect]
     Indication: DEPRESSION
     Dosage: 100 MG, DAILY
  4. MELLARIL [Concomitant]
     Dosage: UNK
     Route: 065
  5. AMBIEN [Concomitant]
     Dosage: 10 MG, DAILY
  6. GEODON [Suspect]
     Indication: BIPOLAR DISORDER
     Dosage: 40 MG, 2X/DAY
  7. ZOLOFT [Suspect]
     Indication: MENTAL DISORDER
     Dosage: 150 MG, 1X/DAY
     Route: 048
  8. GEODON [Suspect]
     Indication: BIPOLAR I DISORDER
     Dosage: 60 MG, 1X/DAY
     Route: 048
     Dates: start: 20010101

REACTIONS (7)
  - INCONTINENCE [None]
  - DISABILITY [None]
  - MENTAL DISORDER [None]
  - DRUG INTOLERANCE [None]
  - BIPOLAR DISORDER [None]
  - THYROID DISORDER [None]
  - HEADACHE [None]
